FAERS Safety Report 23740829 (Version 1)
Quarter: 2024Q2

REPORT INFORMATION
  Report Type: Spontaneous
  Country: JP (occurrence: JP)
  Receive Date: 20240415
  Receipt Date: 20240415
  Transmission Date: 20240716
  Serious: Yes (Other)
  Sender: FDA-Public Use
  Company Number: JP-CHUGAI-2024011270

PATIENT
  Age: 9 Decade

DRUGS (1)
  1. ALECENSA [Suspect]
     Active Substance: ALECTINIB HYDROCHLORIDE
     Indication: Non-small cell lung cancer
     Dosage: 300 MILLIGRAM, BID
     Route: 065
     Dates: start: 2021

REACTIONS (3)
  - Blood bilirubin increased [Recovering/Resolving]
  - Metastases to lung [Unknown]
  - Metastases to central nervous system [Unknown]
